FAERS Safety Report 21138202 (Version 1)
Quarter: 2022Q3

REPORT INFORMATION
  Report Type: Spontaneous
  Country: CN (occurrence: CN)
  Receive Date: 20220727
  Receipt Date: 20220727
  Transmission Date: 20221027
  Serious: Yes (Other)
  Sender: FDA-Public Use
  Company Number: CN-BAYER-2022A102575

PATIENT
  Age: 78 Year
  Sex: Female

DRUGS (2)
  1. AVELOX [Suspect]
     Active Substance: MOXIFLOXACIN HYDROCHLORIDE
     Indication: Pneumonia
     Dosage: 0.4 G, QD
     Route: 048
     Dates: start: 20220717, end: 20220718
  2. AVELOX [Suspect]
     Active Substance: MOXIFLOXACIN HYDROCHLORIDE
     Indication: Mycoplasma infection

REACTIONS (4)
  - Dyskinesia [Not Recovered/Not Resolved]
  - Chest discomfort [None]
  - Suffocation feeling [None]
  - Mental disorder [None]

NARRATIVE: CASE EVENT DATE: 20220718
